FAERS Safety Report 12790044 (Version 1)
Quarter: 2016Q3

REPORT INFORMATION
  Report Type: Spontaneous
  Country: ZA (occurrence: ZA)
  Receive Date: 20160928
  Receipt Date: 20160928
  Transmission Date: 20161109
  Serious: Yes (Hospitalization)
  Sender: FDA-Public Use
  Company Number: ZA-009507513-1609ZAF010813

PATIENT
  Age: 54 Year
  Sex: Female

DRUGS (1)
  1. CELESTONE SOLUSPAN [Suspect]
     Active Substance: BETAMETHASONE ACETATE\BETAMETHASONE SODIUM PHOSPHATE
     Indication: ARTHRALGIA
     Dosage: UNK
     Route: 030

REACTIONS (7)
  - Thyroid disorder [Not Recovered/Not Resolved]
  - Dizziness [Not Recovered/Not Resolved]
  - Hypertension [Not Recovered/Not Resolved]
  - Tremor [Not Recovered/Not Resolved]
  - Oral mucosal exfoliation [Not Recovered/Not Resolved]
  - Vomiting [Not Recovered/Not Resolved]
  - Regurgitation [Not Recovered/Not Resolved]

NARRATIVE: CASE EVENT DATE: 201607
